FAERS Safety Report 6930314-2 (Version None)
Quarter: 2010Q3

REPORT INFORMATION
  Report Type: 
  Country: None (occurrence: None)
  Receive Date: 20100813
  Receipt Date: 20100729
  Transmission Date: 20110219
  Serious: Yes (Other)
  Sender: FDA-Public Use
  Company Number: 2010US003120

PATIENT
  Sex: Female

DRUGS (2)
  1. AMBISOME [Suspect]
     Indication: PRODUCT USED FOR UNKNOWN INDICATION
     Dates: start: 20091101, end: 20091101
  2. AZATHIOPRINE SODIUM [Concomitant]

REACTIONS (3)
  - ANAPHYLACTIC SHOCK [None]
  - DRUG EXPOSURE DURING PREGNANCY [None]
  - PREMATURE LABOUR [None]
